FAERS Safety Report 4569536-7 (Version None)
Quarter: 2005Q1

REPORT INFORMATION
  Report Type: 
  Country: None (occurrence: None)
  Receive Date: 20050201
  Receipt Date: 20050117
  Transmission Date: 20050727
  Serious: Yes (Hospitalization)
  Sender: FDA-Public Use
  Company Number: 2005CG00138

PATIENT
  Age: 42 Year
  Sex: Male

DRUGS (6)
  1. OMEPRAZOLE [Suspect]
     Dosage: 1 DF DAILY PO
     Route: 048
     Dates: start: 20030613, end: 20030716
  2. NAPROXEN [Suspect]
     Dosage: 1 DF DAILY PO
     Route: 048
     Dates: start: 20030613, end: 20030716
  3. SULFASALAZINE [Suspect]
     Dosage: 500 MG DAILY PO
     Route: 048
     Dates: start: 20030613, end: 20030619
  4. SULFASALAZINE [Suspect]
     Dosage: 500 MG BID PO
     Route: 048
     Dates: start: 20030620, end: 20030626
  5. SULFASALAZINE [Suspect]
     Dosage: 500 MG TID PO
     Route: 048
     Dates: start: 20030627, end: 20030703
  6. SULFASALAZINE [Suspect]
     Dosage: 500 MG QID PO
     Route: 048
     Dates: start: 20030704, end: 20030716

REACTIONS (6)
  - BLOOD CREATININE INCREASED [None]
  - CYTOLYTIC HEPATITIS [None]
  - DRUG RASH WITH EOSINOPHILIA AND SYSTEMIC SYMPTOMS [None]
  - DYSPNOEA [None]
  - EXTRASYSTOLES [None]
  - RENAL DISORDER [None]
